FAERS Safety Report 6991842-7 (Version None)
Quarter: 2010Q3

REPORT INFORMATION
  Report Type: 
  Country: None (occurrence: None)
  Receive Date: 20100917
  Receipt Date: 20100906
  Transmission Date: 20110219
  Serious: Yes (Hospitalization, Other)
  Sender: FDA-Public Use
  Company Number: DE-PFIZER INC-2010112644

PATIENT
  Age: 78 Year
  Sex: Female
  Weight: 55 kg

DRUGS (4)
  1. LYRICA [Suspect]
     Indication: NEURALGIA
     Dosage: 25 MG, 2X/DAY
     Route: 048
     Dates: start: 20091228
  2. METAMIZOLE [Concomitant]
     Dosage: 20 GTT DAILY, AS NEEDED
  3. ZOSTEX [Concomitant]
     Indication: HERPES ZOSTER
     Dosage: UNK
     Dates: start: 20091228, end: 20100103
  4. ZOVIRAX [Concomitant]

REACTIONS (11)
  - BONE MARROW FAILURE [None]
  - CHOLELITHIASIS [None]
  - GASTRITIS [None]
  - HAEMORRHOIDS [None]
  - HEPATIC ENZYME INCREASED [None]
  - HEPATITIS [None]
  - HIATUS HERNIA [None]
  - LEUKOPENIA [None]
  - OSTEONECROSIS [None]
  - SCOLIOSIS [None]
  - VASCULAR ENCEPHALOPATHY [None]
